FAERS Safety Report 15658535 (Version 2)
Quarter: 2019Q1

REPORT INFORMATION
  Report Type: Report from Study
  Country: US (occurrence: US)
  Receive Date: 20181126
  Receipt Date: 20190130
  Transmission Date: 20190417
  Serious: Yes (Other)
  Sender: FDA-Public Use
  Company Number: PHEH2018US049161

PATIENT
  Sex: Female
  Weight: 59.41 kg

DRUGS (1)
  1. COSENTYX [Suspect]
     Active Substance: SECUKINUMAB
     Indication: PSORIASIS
     Dosage: 300 MG (TWO PENS), Q4W
     Route: 058
     Dates: start: 20180831, end: 20181031

REACTIONS (3)
  - Oral candidiasis [Unknown]
  - Infection [Recovering/Resolving]
  - Blood glucose increased [Unknown]
